FAERS Safety Report 8373636-3 (Version None)
Quarter: 2012Q2

REPORT INFORMATION
  Report Type: 
  Country: None (occurrence: None)
  Receive Date: 20120521
  Receipt Date: 20120210
  Transmission Date: 20120825
  Serious: Yes (Other)
  Sender: FDA-Public Use
  Company Number: US-TEVA-322448USA

PATIENT
  Sex: Female
  Weight: 57.658 kg

DRUGS (4)
  1. TREANDA [Suspect]
     Indication: CHRONIC LYMPHOCYTIC LEUKAEMIA
     Route: 042
     Dates: start: 20120120
  2. TYLENOL PM [Concomitant]
     Indication: SLEEP DISORDER
  3. THYROID MEDICATION [Concomitant]
  4. CHOLESTEROL MEDICATION [Concomitant]

REACTIONS (9)
  - NAUSEA [None]
  - FATIGUE [None]
  - VOMITING [None]
  - INSOMNIA [None]
  - DEPRESSION [None]
  - PAIN OF SKIN [None]
  - PAIN IN EXTREMITY [None]
  - OEDEMA PERIPHERAL [None]
  - THROMBOSIS [None]
